FAERS Safety Report 18501414 (Version 4)
Quarter: 2020Q4

REPORT INFORMATION
  Report Type: Spontaneous
  Country: JP (occurrence: JP)
  Receive Date: 20201113
  Receipt Date: 20201215
  Transmission Date: 20210114
  Serious: No
  Sender: FDA-Public Use
  Company Number: JP-JNJFOC-20201047015

PATIENT
  Age: 83 Year
  Sex: Female
  Weight: 40 kg

DRUGS (1)
  1. SIMPONI [Suspect]
     Active Substance: GOLIMUMAB
     Indication: RHEUMATOID ARTHRITIS
     Route: 058
     Dates: start: 201901

REACTIONS (4)
  - Administration site haemorrhage [Unknown]
  - Device infusion issue [Unknown]
  - Administration site discolouration [Unknown]
  - Needle issue [Unknown]

NARRATIVE: CASE EVENT DATE: 20201023
